FAERS Safety Report 7765234-7 (Version None)
Quarter: 2011Q3

REPORT INFORMATION
  Report Type: 
  Country: None (occurrence: None)
  Receive Date: 20110921
  Receipt Date: 20110916
  Transmission Date: 20111222
  Serious: Yes (Hospitalization)
  Sender: FDA-Public Use
  Company Number: BR-GLAXOSMITHKLINE-A0945221A

PATIENT
  Sex: Female
  Weight: 75 kg

DRUGS (3)
  1. SERETIDE [Suspect]
     Indication: ASTHMA
     Route: 055
     Dates: start: 20110815
  2. BEROTEC [Concomitant]
     Indication: DYSPNOEA
     Dosage: 5DROP TWICE PER DAY
     Dates: start: 20110819
  3. ATROVENT [Concomitant]
     Indication: DYSPNOEA
     Dosage: 25DROP TWICE PER DAY
     Dates: start: 20110819

REACTIONS (6)
  - DEVICE MALFUNCTION [None]
  - ASTHMATIC CRISIS [None]
  - DYSPNOEA [None]
  - PNEUMONIA [None]
  - DRUG INEFFECTIVE [None]
  - PRODUCT QUALITY ISSUE [None]
